FAERS Safety Report 5232208-X (Version None)
Quarter: 2007Q1

REPORT INFORMATION
  Report Type: 
  Country: None (occurrence: None)
  Receive Date: 20070205
  Receipt Date: 20070129
  Transmission Date: 20070707
  Serious: Yes (Other)
  Sender: FDA-Public Use
  Company Number: 430055K06USA

PATIENT
  Age: 50 Year
  Sex: Male

DRUGS (2)
  1. NOVANTRONE [Suspect]
     Indication: MULTIPLE SCLEROSIS
     Dosage: 23 MG, ONCE, INTRAVENOUS (NOT OTHERWISE SPECIFIED); SEE IMAGE
     Route: 042
     Dates: start: 20051219, end: 20051219
  2. NOVANTRONE [Suspect]
     Indication: MULTIPLE SCLEROSIS
     Dosage: 23 MG, ONCE, INTRAVENOUS (NOT OTHERWISE SPECIFIED); SEE IMAGE
     Route: 042
     Dates: start: 20060301, end: 20060301

REACTIONS (1)
  - EJECTION FRACTION DECREASED [None]
